FAERS Safety Report 17937266 (Version 1)
Quarter: 2020Q2

REPORT INFORMATION
  Report Type: Spontaneous
  Country: DE (occurrence: DE)
  Receive Date: 20200624
  Receipt Date: 20200624
  Transmission Date: 20200714
  Serious: Yes (Hospitalization)
  Sender: FDA-Public Use
  Company Number: DE-TEVA-2020-DE-1790634

PATIENT
  Age: 90 Year
  Sex: Male

DRUGS (9)
  1. MACROGOL [Concomitant]
     Active Substance: POLYETHYLENE GLYCOLS
     Dosage: IF NECESSARY
     Route: 048
  2. APIXABAN [Concomitant]
     Active Substance: APIXABAN
     Dosage: 5 MILLIGRAM DAILY; 2.5 MG, 1-0-1-0,
     Route: 048
  3. ACLIDINIUMBROMID/FORMOTEROL [Concomitant]
     Dosage: 2 DOSAGE FORMS DAILY; 12 | 343 UG, 1-0-1-0, MDI
     Route: 055
  4. IPRATROPIUMBROMID [Concomitant]
     Active Substance: IPRATROPIUM BROMIDE
     Dosage: 1.25 MG / ML, IF NECESSARY
     Route: 055
  5. SALBUTAMOL [Concomitant]
     Active Substance: ALBUTEROL
     Dosage: 1.25 MG / ML, IF NECESSARY
     Route: 055
  6. LATANOPROST/TIMOLOL [Concomitant]
     Active Substance: LATANOPROST\TIMOLOL
     Dosage: 0.05 | 5 MG / ML, DROPS
  7. METAMIZOL [Concomitant]
     Active Substance: METAMIZOLE SODIUM
     Dosage: 500 MG, 6X,
     Route: 048
  8. TRAMADOL. [Suspect]
     Active Substance: TRAMADOL
     Dosage: 50 MG, 4X,
     Route: 048
  9. TORASEMID [Concomitant]
     Active Substance: TORSEMIDE
     Dosage: .5 DOSAGE FORMS DAILY; 10 MG, 0.5-0-0-0,
     Route: 048

REACTIONS (2)
  - Loss of consciousness [Unknown]
  - Fall [Unknown]
